FAERS Safety Report 23777027 (Version 1)
Quarter: 2024Q2

REPORT INFORMATION
  Report Type: Spontaneous
  Country: FR (occurrence: FR)
  Receive Date: 20240424
  Receipt Date: 20240424
  Transmission Date: 20240715
  Serious: Yes (Life-Threatening, Hospitalization, Other)
  Sender: FDA-Public Use
  Company Number: None

PATIENT
  Sex: Female
  Weight: 74 kg

DRUGS (1)
  1. CIMZIA [Suspect]
     Active Substance: CERTOLIZUMAB PEGOL
     Indication: Crohn^s disease
     Dosage: UNK
     Route: 058
     Dates: start: 200810, end: 201504

REACTIONS (2)
  - Dilated cardiomyopathy [Recovered/Resolved with Sequelae]
  - Heart transplant [Recovered/Resolved with Sequelae]

NARRATIVE: CASE EVENT DATE: 20140301
